FAERS Safety Report 4596132-8 (Version None)
Quarter: 2005Q1

REPORT INFORMATION
  Report Type: 
  Country: None (occurrence: None)
  Receive Date: 20050302
  Receipt Date: 20030728
  Transmission Date: 20050727
  Serious: Yes (Other)
  Sender: FDA-Public Use
  Company Number: US-ROCHE-343525

PATIENT
  Age: 43 Year
  Sex: Male

DRUGS (4)
  1. VALIUM [Suspect]
     Indication: ANXIETY
     Route: 048
  2. VALIUM [Suspect]
     Route: 048
  3. VALIUM [Suspect]
     Route: 048
  4. VALIUM [Suspect]
     Dosage: HE TOOK 40 - 45 MG.
     Route: 048

REACTIONS (13)
  - ABASIA [None]
  - ANOREXIA [None]
  - DRUG DEPENDENCE [None]
  - DRUG INEFFECTIVE [None]
  - DYSPNOEA [None]
  - FEELING DRUNK [None]
  - IMPAIRED DRIVING ABILITY [None]
  - NO ADVERSE EFFECT [None]
  - OVERDOSE [None]
  - PHARMACEUTICAL PRODUCT COMPLAINT [None]
  - SELF-INJURIOUS IDEATION [None]
  - SUICIDAL IDEATION [None]
  - UNDERWEIGHT [None]
